FAERS Safety Report 9720807 (Version 2)
Quarter: 2014Q1

REPORT INFORMATION
  Report Type: Report from Study
  Country: US (occurrence: US)
  Receive Date: 20131129
  Receipt Date: 20140312
  Transmission Date: 20141002
  Serious: Yes (Other)
  Sender: FDA-Public Use
  Company Number: US-ASTRAZENECA-2013SE86660

PATIENT
  Age: 82 Year
  Sex: Female
  Weight: 95.3 kg

DRUGS (9)
  1. ARIMIDEX [Suspect]
     Indication: BREAST CANCER FEMALE
     Route: 048
     Dates: start: 2007, end: 2012
  2. CRESTOR [Suspect]
     Indication: BLOOD CHOLESTEROL INCREASED
     Route: 048
     Dates: start: 2010, end: 201311
  3. METOPROLOL TARTRATE [Suspect]
     Indication: HYPERTENSION
     Route: 048
  4. NORVASC [Concomitant]
     Indication: HYPERTENSION
     Dosage: DAILY
     Route: 048
  5. CENTRUM SILVER [Concomitant]
     Indication: VITAMIN SUPPLEMENTATION
     Dosage: DAILY
     Route: 048
  6. COQ 10 [Concomitant]
     Indication: SUPPLEMENTATION THERAPY
     Dosage: DAILY
     Route: 048
  7. B12 [Concomitant]
     Indication: VITAMIN SUPPLEMENTATION
     Dosage: DAILY
     Route: 048
  8. ASPIRIN [Concomitant]
     Indication: ISCHAEMIC HEART DISEASE PROPHYLAXIS
     Route: 048
  9. CHEMOTHERAPY [Concomitant]

REACTIONS (4)
  - Colon cancer [Unknown]
  - Fatigue [Recovering/Resolving]
  - Alopecia [Recovering/Resolving]
  - Drug dose omission [Not Recovered/Not Resolved]
